FAERS Safety Report 7997576-4 (Version None)
Quarter: 2011Q4

REPORT INFORMATION
  Report Type: 
  Country: None (occurrence: None)
  Receive Date: 20111221
  Receipt Date: 20111208
  Transmission Date: 20120403
  Serious: Yes (Other)
  Sender: FDA-Public Use
  Company Number: DE-JNJFOC-20111208427

PATIENT
  Sex: Female
  Weight: 80 kg

DRUGS (4)
  1. DICLOFENAC [Concomitant]
     Indication: BACK PAIN
  2. TAPENTADOL HYDROCHLORIDE [Suspect]
     Route: 048
     Dates: start: 20101201, end: 20110106
  3. TAPENTADOL HYDROCHLORIDE [Suspect]
     Route: 048
     Dates: start: 20110101, end: 20110515
  4. TAPENTADOL HYDROCHLORIDE [Suspect]
     Indication: BACK PAIN
     Route: 048
     Dates: start: 20101215

REACTIONS (2)
  - ACUTE MYOCARDIAL INFARCTION [None]
  - RENAL FAILURE ACUTE [None]
